FAERS Safety Report 10082984 (Version 2)
Quarter: 2014Q2

REPORT INFORMATION
  Report Type: Spontaneous
  Country: US (occurrence: US)
  Receive Date: 20140417
  Receipt Date: 20140417
  Transmission Date: 20141212
  Serious: Yes (Hospitalization)
  Sender: FDA-Public Use
  Company Number: US-ROCHE-1353707

PATIENT
  Sex: Female
  Weight: 53 kg

DRUGS (14)
  1. PERJETA [Suspect]
     Indication: BREAST CANCER METASTATIC
     Route: 065
  2. HERCEPTIN [Suspect]
     Indication: BREAST CANCER METASTATIC
     Route: 065
  3. KLONOPIN [Suspect]
     Indication: PRODUCT USED FOR UNKNOWN INDICATION
     Route: 048
  4. AZITHROMYCIN [Concomitant]
     Route: 048
  5. LETROZOLE [Concomitant]
     Route: 048
  6. PROCHLORPERAZINE MALEATE [Concomitant]
     Indication: NAUSEA
     Dosage: 1 Q6H
     Route: 048
  7. ZOLOFT [Concomitant]
     Route: 048
  8. CEFTRIAXONE SODIUM [Concomitant]
     Dosage: Q24H IV PB
     Route: 065
  9. CIPRO [Concomitant]
     Indication: PYREXIA
     Route: 048
  10. DEXAMETHASONE [Concomitant]
     Dosage: TOTAL 6 DOSES STARTING NIGHT PROIR TO CHEMO.
     Route: 048
  11. ZOFRAN [Concomitant]
     Indication: NAUSEA
     Route: 048
  12. RANITIDINE HCL [Concomitant]
     Indication: NAUSEA
     Dosage: QHS
     Route: 048
  13. RANITIDINE HCL [Concomitant]
     Indication: PROPHYLAXIS AGAINST GASTROINTESTINAL ULCER
  14. ZOLOFT [Concomitant]
     Route: 048

REACTIONS (2)
  - Cardiac failure congestive [Unknown]
  - Diarrhoea [Unknown]
